FAERS Safety Report 9445816 (Version 5)
Quarter: 2014Q1

REPORT INFORMATION
  Report Type: Spontaneous
  Country: JP (occurrence: JP)
  Receive Date: 20130807
  Receipt Date: 20140117
  Transmission Date: 20141002
  Serious: Yes (Life-Threatening, Hospitalization, Other)
  Sender: FDA-Public Use
  Company Number: JP-B.I. PHARMACEUTICALS,INC./RIDGEFIELD-2013-BI-23319NB

PATIENT
  Age: 73 Year
  Sex: Male
  Weight: 47.9 kg

DRUGS (9)
  1. TRAZENTA [Suspect]
     Indication: DIABETES MELLITUS
     Dosage: 5 MG
     Route: 048
     Dates: start: 20130726, end: 20130801
  2. ROZEREM [Suspect]
     Indication: INSOMNIA
     Dosage: 8 MG
     Route: 048
     Dates: start: 20130726, end: 20130731
  3. ROZEREM [Suspect]
     Dosage: 8 MG
     Route: 048
     Dates: start: 20130830
  4. TANATRIL / IMIDAPRIL HYDROCHLORIDE [Concomitant]
     Indication: HYPERTENSION
     Dosage: 5 MG
     Route: 048
     Dates: start: 20130726, end: 20130801
  5. DIART / AZOSEMIDE [Concomitant]
     Indication: HYPERTENSION
     Dosage: 30 MG
     Route: 048
     Dates: start: 20130729, end: 20130731
  6. SULBACILLIN / SULBACTAM SODIUM_AMPICILLIN SODIUM [Concomitant]
     Indication: PNEUMONIA
     Dosage: 6 G
     Route: 042
     Dates: start: 20130719, end: 20130731
  7. ARASENA-A / VIDARABINE [Concomitant]
     Indication: MENINGITIS
     Dosage: 600 MG
     Route: 042
     Dates: start: 20130719, end: 20130729
  8. GLYCEOL / CONCENTRATED GLYCERIN_FRUCTOSE [Concomitant]
     Indication: MENINGITIS
     Dosage: 300 MG
     Route: 042
     Dates: start: 20130719, end: 20130728
  9. GASPORT / FAMOTIDINE [Concomitant]
     Indication: PROPHYLAXIS
     Dosage: 40 MG
     Route: 042
     Dates: start: 20130719

REACTIONS (5)
  - Ileus paralytic [Recovered/Resolved]
  - Pneumonia aspiration [Recovered/Resolved]
  - Vomiting [Recovered/Resolved]
  - Aspiration [Recovered/Resolved]
  - Dyspnoea [Recovered/Resolved]
